FAERS Safety Report 17397540 (Version 1)
Quarter: 2020Q1

REPORT INFORMATION
  Report Type: Report from Study
  Country: IT (occurrence: IT)
  Receive Date: 20200210
  Receipt Date: 20200210
  Transmission Date: 20200409
  Serious: Yes (Death)
  Sender: FDA-Public Use
  Company Number: IT-ASTRAZENECA-2020SE20099

PATIENT
  Age: 68 Year
  Sex: Male

DRUGS (1)
  1. QUETIAPINE. [Suspect]
     Active Substance: QUETIAPINE
     Route: 048

REACTIONS (5)
  - Fall [Fatal]
  - Toxicity to various agents [Fatal]
  - Head injury [Fatal]
  - Completed suicide [Fatal]
  - Chest injury [Fatal]
